FAERS Safety Report 4503391-6 (Version None)
Quarter: 2004Q4

REPORT INFORMATION
  Report Type: 
  Country: None (occurrence: None)
  Receive Date: 20041117
  Receipt Date: 20041026
  Transmission Date: 20050328
  Serious: Yes (Other)
  Sender: FDA-Public Use
  Company Number: ES-GLAXOSMITHKLINE-B0349594A

PATIENT
  Age: 37 Year
  Sex: Male

DRUGS (9)
  1. LAMIVUDINE [Suspect]
     Dosage: 150MG TWICE PER DAY
     Route: 065
  2. ZIDOVUDINE [Suspect]
     Dosage: 250MG TWICE PER DAY
     Route: 065
  3. EFAVIRENZ [Suspect]
     Dosage: 600MG PER DAY
     Route: 065
  4. RIFAMPICIN [Suspect]
     Route: 065
  5. ISONIAZID [Suspect]
     Route: 065
  6. PYRAZINAMIDE [Suspect]
     Route: 065
  7. ETHAMBUTOL [Suspect]
     Route: 065
  8. PAROMOMYCIN [Concomitant]
     Route: 065
  9. AZITHROMYCIN [Concomitant]
     Route: 065

REACTIONS (12)
  - ABSCESS [None]
  - ATYPICAL MYCOBACTERIAL LYMPHADENITIS [None]
  - CELLULITIS [None]
  - CONDITION AGGRAVATED [None]
  - DRUG INEFFECTIVE [None]
  - HAEMOGLOBIN DECREASED [None]
  - HEPATOMEGALY [None]
  - IMMUNE RECONSTITUTION SYNDROME [None]
  - LUNG NEOPLASM [None]
  - LYMPH NODE TUBERCULOSIS [None]
  - PARADOXICAL DRUG REACTION [None]
  - SPLENOMEGALY [None]
